FAERS Safety Report 7829598-8 (Version None)
Quarter: 2011Q4

REPORT INFORMATION
  Report Type: 
  Country: None (occurrence: None)
  Receive Date: 20111020
  Receipt Date: 20110428
  Transmission Date: 20120403
  Serious: Yes (Other)
  Sender: FDA-Public Use
  Company Number: PHHY2011HU32176

PATIENT
  Age: 83 Year
  Sex: Female

DRUGS (8)
  1. ATORVASTATIN [Interacting]
     Dosage: UNK
  2. PERINDOPRIL ERBUMINE [Concomitant]
  3. INDAPAMIDE [Concomitant]
  4. CATAFLAM [Suspect]
     Dosage: 50 MG, UNK
  5. SIMVASTATIN [Interacting]
  6. METFORMIN HCL [Concomitant]
  7. SINTROM [Interacting]
  8. ALLOPURINOL [Concomitant]

REACTIONS (5)
  - HAEMORRHAGE [None]
  - PAIN IN EXTREMITY [None]
  - DRUG INTERACTION [None]
  - INTERNATIONAL NORMALISED RATIO INCREASED [None]
  - OEDEMA PERIPHERAL [None]
